FAERS Safety Report 4864226-5 (Version None)
Quarter: 2005Q4

REPORT INFORMATION
  Report Type: 
  Country: None (occurrence: None)
  Receive Date: 20051222
  Receipt Date: 20051214
  Transmission Date: 20060501
  Serious: Yes (Hospitalization)
  Sender: FDA-Public Use
  Company Number: FR-SANOFI-SYNTHELABO-F01200502776

PATIENT
  Sex: Male
  Weight: 88 kg

DRUGS (4)
  1. OXALIPLATIN [Suspect]
     Indication: OESOPHAGEAL CARCINOMA
     Route: 042
     Dates: start: 20051204, end: 20051204
  2. FLUOROURACIL [Suspect]
     Route: 042
     Dates: start: 20051204, end: 20051205
  3. LEUCOVORIN CALCIUM [Suspect]
     Route: 042
     Dates: start: 20051204, end: 20051205
  4. RADIOTHERAPY [Concomitant]
     Indication: OESOPHAGEAL CARCINOMA
     Dosage: TOTAL DOSE OF FRACTION ADMINISTERED BEFORE SAE: NOT SPECIFIED
     Route: 050
     Dates: start: 20051107, end: 20051201

REACTIONS (3)
  - HYPERCREATININAEMIA [None]
  - OESOPHAGITIS [None]
  - PYREXIA [None]
